FAERS Safety Report 10509156 (Version 1)
Quarter: 2014Q3

REPORT INFORMATION
  Report Type: Spontaneous
  Country: US (occurrence: None)
  Receive Date: 20140915
  Receipt Date: 20140915
  Transmission Date: 20150326
  Serious: Yes (Hospitalization)
  Sender: FDA-Public Use
  Company Number: 2014-US-000633

PATIENT
  Age: 53 Year
  Sex: Female

DRUGS (1)
  1. XYREM [Suspect]
     Active Substance: SODIUM OXYBATE
     Indication: SOMNOLENCE
     Route: 048
     Dates: start: 200705, end: 2007

REACTIONS (4)
  - Depression [None]
  - Anxiety disorder [None]
  - Confusional state [None]
  - Disorientation [None]

NARRATIVE: CASE EVENT DATE: 20140115
